FAERS Safety Report 6716361-4 (Version None)
Quarter: 2010Q2

REPORT INFORMATION
  Report Type: 
  Country: None (occurrence: None)
  Receive Date: 20100507
  Receipt Date: 20100427
  Transmission Date: 20101027
  Serious: Yes (Other)
  Sender: FDA-Public Use
  Company Number: PHHY2010SA27576

PATIENT
  Age: 41 Year
  Sex: Female

DRUGS (1)
  1. METHERGINE [Suspect]
     Indication: ABORTION INCOMPLETE COMPLICATED

REACTIONS (2)
  - POSTOPERATIVE WOUND COMPLICATION [None]
  - VAGINAL HAEMORRHAGE [None]
